FAERS Safety Report 23663784 (Version 1)
Quarter: 2024Q1

REPORT INFORMATION
  Report Type: Spontaneous
  Country: GB (occurrence: GB)
  Receive Date: 20240322
  Receipt Date: 20240322
  Transmission Date: 20240410
  Serious: Yes (Other)
  Sender: FDA-Public Use
  Company Number: None

PATIENT
  Age: 75 Year
  Sex: Male
  Weight: 98 kg

DRUGS (5)
  1. EZETIMIBE [Suspect]
     Active Substance: EZETIMIBE
     Indication: Product used for unknown indication
  2. METFORMIN HYDROCHLORIDE [Concomitant]
     Active Substance: METFORMIN HYDROCHLORIDE
     Dosage: WITH MEALS (METFORMIN T...
     Dates: start: 20220407
  3. ZOPICLONE [Concomitant]
     Active Substance: ZOPICLONE
     Dosage: TAKE ONE TABLET AT NIGHT WHEN REQUIRED. DO NOT, AS NECESSARY
     Dates: start: 20231213, end: 20240110
  4. MIRABEGRON [Concomitant]
     Active Substance: MIRABEGRON
     Indication: Micturition urgency
     Dosage: TO REDUCE BLADDER URGE
     Dates: start: 20210616
  5. SILDENAFIL [Concomitant]
     Active Substance: SILDENAFIL
     Dosage: TO BE TAKEN AS DIRECTED
     Dates: start: 20200227

REACTIONS (2)
  - Muscular weakness [Recovered/Resolved]
  - Asthenia [Unknown]
